FAERS Safety Report 10162486 (Version 1)
Quarter: 2014Q2

REPORT INFORMATION
  Report Type: Spontaneous
  Country: AU (occurrence: AU)
  Receive Date: 20140509
  Receipt Date: 20140509
  Transmission Date: 20141212
  Serious: Yes (Hospitalization)
  Sender: FDA-Public Use
  Company Number: AU-ABBVIE-14K-008-1233580-00

PATIENT
  Age: 67 Year
  Sex: 0

DRUGS (1)
  1. LUCRIN DEPOT [Suspect]
     Indication: PRODUCT USED FOR UNKNOWN INDICATION
     Dates: start: 20131211

REACTIONS (4)
  - Deep vein thrombosis [Unknown]
  - Dyspnoea [Unknown]
  - Urinary tract infection [Unknown]
  - Radiotherapy [Unknown]
